FAERS Safety Report 13808614 (Version 1)
Quarter: 2017Q3

REPORT INFORMATION
  Report Type: Spontaneous
  Country: US (occurrence: US)
  Receive Date: 20170728
  Receipt Date: 20170728
  Transmission Date: 20171127
  Serious: No
  Sender: FDA-Public Use
  Company Number: US-INCYTE CORPORATION-2017IN005707

PATIENT

DRUGS (1)
  1. JAKAFI [Suspect]
     Active Substance: RUXOLITINIB
     Indication: CHRONIC MYELOID LEUKAEMIA
     Dosage: 10 MG, QD
     Route: 048
     Dates: start: 20170601

REACTIONS (4)
  - White blood cell count increased [Unknown]
  - Off label use [Unknown]
  - Red blood cell count decreased [Unknown]
  - Incorrect dose administered [Unknown]
